FAERS Safety Report 4680925-2 (Version None)
Quarter: 2005Q2

REPORT INFORMATION
  Report Type: 
  Country: None (occurrence: None)
  Receive Date: 20050603
  Receipt Date: 20050526
  Transmission Date: 20051028
  Serious: Yes (Other)
  Sender: FDA-Public Use
  Company Number: PHBS2005NL07557

PATIENT
  Age: 26 Year
  Sex: Male

DRUGS (1)
  1. CALCITONIN-SANDOZ [Suspect]
     Dosage: UNK, UNK

REACTIONS (2)
  - LOSS OF CONSCIOUSNESS [None]
  - SYNCOPE [None]
